FAERS Safety Report 15061752 (Version 1)
Quarter: 2018Q2

REPORT INFORMATION
  Report Type: Spontaneous
  Country: US (occurrence: US)
  Receive Date: 20180625
  Receipt Date: 20180625
  Transmission Date: 20180711
  Serious: Yes (Death, Other)
  Sender: FDA-Public Use
  Company Number: US-SUNOVION-2018SUN002530

PATIENT
  Sex: Female

DRUGS (1)
  1. LATUDA [Suspect]
     Active Substance: LURASIDONE HYDROCHLORIDE
     Indication: HALLUCINATION
     Dosage: UNK
     Route: 048

REACTIONS (4)
  - Death [Fatal]
  - Hallucination [Unknown]
  - Off label use [Unknown]
  - Drug ineffective for unapproved indication [Unknown]
